FAERS Safety Report 24016663 (Version 9)
Quarter: 2025Q4

REPORT INFORMATION
  Report Type: Spontaneous
  Country: JP (occurrence: JP)
  Receive Date: 20240626
  Receipt Date: 20251023
  Transmission Date: 20260117
  Serious: Yes (Hospitalization, Other)
  Sender: APELLIS PHARMACEUTICALS
  Company Number: JP-BIOVITRUM-2024-JP-008906

PATIENT
  Weight: 93 kg

DRUGS (2)
  1. EMPAVELI [Suspect]
     Active Substance: PEGCETACOPLAN
     Indication: Paroxysmal nocturnal haemoglobinuria
     Dosage: TWICE/WEEK
     Route: 058
  2. EMPAVELI [Suspect]
     Active Substance: PEGCETACOPLAN
     Dosage: INCREASED TO ONCE PER THREE DAYS
     Route: 058
     Dates: end: 20241101

REACTIONS (10)
  - Fatigue [Recovering/Resolving]
  - Dysphagia [Recovered/Resolved]
  - Chromaturia [Recovered/Resolved]
  - Injury associated with device [Unknown]
  - Haematuria [Recovered/Resolved]
  - Anaemia [Recovered/Resolved]
  - Injection site induration [Unknown]
  - Wrong technique in product usage process [Unknown]
  - Product dose omission in error [Unknown]
  - Haemolysis [Recovered/Resolved]

NARRATIVE: CASE EVENT DATE: 20240514
